FAERS Safety Report 13167779 (Version 1)
Quarter: 2017Q1

REPORT INFORMATION
  Report Type: Spontaneous
  Country: US (occurrence: US)
  Receive Date: 20170131
  Receipt Date: 20170131
  Transmission Date: 20170428
  Serious: Yes (Hospitalization)
  Sender: FDA-Public Use
  Company Number: US-ELI_LILLY_AND_COMPANY-US201607010626

PATIENT
  Age: 30 Year
  Sex: Female

DRUGS (2)
  1. CYMBALTA [Suspect]
     Active Substance: DULOXETINE HYDROCHLORIDE
     Indication: DEPRESSION
     Dosage: 60 MG, QD
     Route: 048
     Dates: end: 20060203
  2. CYMBALTA [Suspect]
     Active Substance: DULOXETINE HYDROCHLORIDE
     Indication: ANXIETY

REACTIONS (12)
  - Insomnia [Unknown]
  - Suicidal ideation [Unknown]
  - Homicidal ideation [Unknown]
  - Fatigue [Unknown]
  - Disturbance in attention [Unknown]
  - Affect lability [Unknown]
  - Paraesthesia [Unknown]
  - Nausea [Unknown]
  - Drug withdrawal syndrome [Unknown]
  - Anxiety [Unknown]
  - Agitation [Unknown]
  - Dizziness [Unknown]

NARRATIVE: CASE EVENT DATE: 200602
